FAERS Safety Report 11961486 (Version 1)
Quarter: 2016Q1

REPORT INFORMATION
  Report Type: Report from Study
  Country: US (occurrence: US)
  Receive Date: 20160126
  Receipt Date: 20160126
  Transmission Date: 20160526
  Serious: No
  Sender: FDA-Public Use
  Company Number: US-ABBVIE-15K-163-1354795-00

PATIENT
  Age: 69 Year
  Sex: Female

DRUGS (4)
  1. WARFARIN [Suspect]
     Active Substance: WARFARIN
     Indication: PRODUCT USED FOR UNKNOWN INDICATION
     Dosage: DOSE VARIES
     Route: 048
  2. IRON [Concomitant]
     Active Substance: IRON
     Indication: PRODUCT USED FOR UNKNOWN INDICATION
     Dates: end: 2015
  3. IRON [Concomitant]
     Active Substance: IRON
     Dates: start: 2015
  4. HUMIRA [Suspect]
     Active Substance: ADALIMUMAB
     Indication: COLITIS ULCERATIVE
     Route: 065
     Dates: start: 20141222

REACTIONS (12)
  - Fatigue [Not Recovered/Not Resolved]
  - Anaemia [Recovering/Resolving]
  - Colitis ulcerative [Recovering/Resolving]
  - Drug level increased [Recovered/Resolved]
  - Vitamin D decreased [Unknown]
  - Rheumatoid arthritis [Not Recovered/Not Resolved]
  - Vitamin C decreased [Unknown]
  - Colitis ulcerative [Recovering/Resolving]
  - Drug ineffective [Not Recovered/Not Resolved]
  - Blood potassium decreased [Unknown]
  - Injection site bruising [Recovered/Resolved]
  - Blood iron decreased [Unknown]

NARRATIVE: CASE EVENT DATE: 20141222
